FAERS Safety Report 6209234-7 (Version None)
Quarter: 2009Q2

REPORT INFORMATION
  Report Type: 
  Country: None (occurrence: None)
  Receive Date: 20090529
  Receipt Date: 20090527
  Transmission Date: 20091009
  Serious: Yes (Death, Hospitalization, Other)
  Sender: FDA-Public Use
  Company Number: PHHO2007IT04967

PATIENT
  Sex: Female
  Weight: 56 kg

DRUGS (2)
  1. RAD 666 RAD+TAB+CMAS [Suspect]
     Indication: COLORECTAL CANCER METASTATIC
     Dosage: 70 MG / WEEKLY
     Route: 048
     Dates: start: 20070124, end: 20070307
  2. TRAMADOL HCL [Concomitant]
     Dates: start: 20061201, end: 20070307

REACTIONS (10)
  - ABDOMINAL PAIN [None]
  - ASTHENIA [None]
  - DEHYDRATION [None]
  - DIARRHOEA [None]
  - ENTEROCOLITIS [None]
  - HEPATIC FUNCTION ABNORMAL [None]
  - HYPOKALAEMIA [None]
  - MALIGNANT NEOPLASM PROGRESSION [None]
  - MUCOSAL INFLAMMATION [None]
  - PYREXIA [None]
